FAERS Safety Report 7453964-6 (Version None)
Quarter: 2011Q2

REPORT INFORMATION
  Report Type: 
  Country: None (occurrence: None)
  Receive Date: 20110502
  Receipt Date: 20110328
  Transmission Date: 20111010
  Serious: No
  Sender: FDA-Public Use
  Company Number: US-BAYER-2011-026989

PATIENT
  Age: 66 Year
  Sex: Male

DRUGS (7)
  1. HYDROXYUREA [Concomitant]
  2. FORADIL [Concomitant]
  3. CORTISONE [Concomitant]
     Indication: MUSCULOSKELETAL PAIN
     Dosage: UNK
     Dates: start: 20110321
  4. VESICARE [Concomitant]
  5. AVELOX [Suspect]
     Indication: COUGH
     Dosage: 400 MG, QD
     Route: 048
     Dates: start: 20110324
  6. AVELOX [Suspect]
     Dosage: 400 MG, QD
     Route: 048
     Dates: start: 20110324
  7. ASPIRIN [Concomitant]

REACTIONS (1)
  - ARTHRALGIA [None]
